FAERS Safety Report 10495444 (Version 2)
Quarter: 2014Q4

REPORT INFORMATION
  Report Type: Spontaneous
  Country: FR (occurrence: FR)
  Receive Date: 20141003
  Receipt Date: 20141010
  Transmission Date: 20150528
  Serious: Yes (Other)
  Sender: FDA-Public Use
  Company Number: FR-PFIZER INC-2014267138

PATIENT
  Age: 16 Month
  Sex: Female

DRUGS (2)
  1. ADVILMED [Suspect]
     Active Substance: IBUPROFEN
     Indication: PYREXIA
     Dosage: DOSE CORRESPONDING TO 9KG
     Route: 048
     Dates: start: 20140709, end: 20140710
  2. CEFPODOXIME [Concomitant]
     Active Substance: CEFPODOXIME
     Indication: EAR INFECTION
     Dosage: UNK
     Dates: start: 20140707

REACTIONS (1)
  - Hypothermia [Recovered/Resolved]

NARRATIVE: CASE EVENT DATE: 20140709
